FAERS Safety Report 5224884-2 (Version None)
Quarter: 2007Q1

REPORT INFORMATION
  Report Type: 
  Country: None (occurrence: None)
  Receive Date: 20070126
  Receipt Date: 20070119
  Transmission Date: 20070707
  Serious: Yes (Disabling)
  Sender: FDA-Public Use
  Company Number: 0SCN-NO-0701S-0045

PATIENT
  Age: 58 Year
  Sex: Male

DRUGS (12)
  1. OMNISCAN [Suspect]
     Indication: DRUG USE FOR UNKNOWN INDICATION
     Dosage: SEE IMAGE
     Route: 042
     Dates: start: 20050609, end: 20050609
  2. OMNISCAN [Suspect]
     Indication: DRUG USE FOR UNKNOWN INDICATION
     Dosage: SEE IMAGE
     Route: 042
     Dates: start: 20050702, end: 20050702
  3. OMNISCAN [Suspect]
     Indication: DRUG USE FOR UNKNOWN INDICATION
     Dosage: SEE IMAGE
     Route: 042
     Dates: start: 20051017, end: 20051017
  4. NORVASC [Concomitant]
  5. MOXONIDINE (PHYSIOTENS) [Concomitant]
  6. CLOPIDOREL SULFATE (PLAVIX) [Concomitant]
  7. PRAVASATATIN SODIUM (PRAVACHOL) [Concomitant]
  8. FRAGMIN [Concomitant]
  9. PANTOPRAZOLE SODIUM [Suspect]
  10. PREDNISONE TAB [Concomitant]
  11. MEROPENEM (MERONEM) [Concomitant]
  12. LINEZOLID (ZYVOXID) [Concomitant]

REACTIONS (3)
  - NEPHROGENIC FIBROSING DERMOPATHY [None]
  - SKIN FIBROSIS [None]
  - THROMBOPHLEBITIS [None]
